FAERS Safety Report 7221656-4 (Version None)
Quarter: 2011Q1

REPORT INFORMATION
  Report Type: 
  Country: None (occurrence: None)
  Receive Date: 20110112
  Receipt Date: 20110105
  Transmission Date: 20110831
  Serious: Yes (Death)
  Sender: FDA-Public Use
  Company Number: JP-ROCHE-747197

PATIENT
  Sex: Female
  Weight: 49 kg

DRUGS (6)
  1. CARBOPLATIN [Concomitant]
     Indication: LUNG ADENOCARCINOMA
     Route: 041
     Dates: start: 20101025
  2. DEXART [Concomitant]
     Route: 041
     Dates: start: 20101025
  3. AVASTIN [Suspect]
     Indication: LUNG ADENOCARCINOMA
     Dosage: ROUTE: INTRAVENOUS DRIP
     Route: 041
     Dates: start: 20101025
  4. ZANTAC [Concomitant]
     Route: 041
     Dates: start: 20101025
  5. RESTAMIN [Concomitant]
     Route: 048
     Dates: start: 20101025
  6. PACLITAXEL [Concomitant]
     Indication: LUNG ADENOCARCINOMA
     Dosage: NOTE: DOSAGE IS UNCERTAIN
     Route: 041
     Dates: start: 20101025

REACTIONS (3)
  - HEADACHE [None]
  - CEREBRAL HAEMORRHAGE [None]
  - NAUSEA [None]
